FAERS Safety Report 16918005 (Version 1)
Quarter: 2019Q4

REPORT INFORMATION
  Report Type: Spontaneous
  Country: PL (occurrence: PL)
  Receive Date: 20191015
  Receipt Date: 20191015
  Transmission Date: 20200122
  Serious: Yes (Life-Threatening, Hospitalization, Other)
  Sender: FDA-Public Use
  Company Number: PL-GLAXOSMITHKLINE-PL2019185608

PATIENT
  Sex: Male
  Weight: 3 kg

DRUGS (3)
  1. ZINACEF [Suspect]
     Active Substance: CEFUROXIME SODIUM
     Indication: PRODUCT USED FOR UNKNOWN INDICATION
     Dosage: 1500 MG, UNK
     Route: 064
     Dates: start: 20141024, end: 20141024
  2. DOPEGYT [Concomitant]
     Active Substance: METHYLDOPA
     Dosage: DOSE: 2 TABLETS
     Route: 064
     Dates: start: 20141024
  3. DOPEGYT [Concomitant]
     Active Substance: METHYLDOPA
     Indication: PRODUCT USED FOR UNKNOWN INDICATION
     Dosage: DOSE: 1 TABLET
     Route: 064
     Dates: end: 20141023

REACTIONS (6)
  - Foetal exposure during pregnancy [Unknown]
  - Atelectasis [Unknown]
  - Electroencephalogram abnormal [Unknown]
  - Pulmonary oedema [Unknown]
  - Neonatal asphyxia [Unknown]
  - Respiratory failure [Unknown]

NARRATIVE: CASE EVENT DATE: 20141024
